FAERS Safety Report 15316708 (Version 1)
Quarter: 2018Q3

REPORT INFORMATION
  Report Type: Spontaneous
  Country: US (occurrence: US)
  Receive Date: 20180824
  Receipt Date: 20180824
  Transmission Date: 20181010
  Serious: No
  Sender: FDA-Public Use
  Company Number: US-GLAXOSMITHKLINE-US2018148170

PATIENT
  Age: 19 Year
  Sex: Female

DRUGS (1)
  1. FLONASE [Suspect]
     Active Substance: FLUTICASONE PROPIONATE
     Indication: HYPERSENSITIVITY
     Dosage: UNK
     Dates: start: 20180814, end: 20180814

REACTIONS (4)
  - Skin warm [Recovering/Resolving]
  - Erythema [Recovering/Resolving]
  - Rash macular [Recovering/Resolving]
  - Contraindicated product administered [Recovering/Resolving]

NARRATIVE: CASE EVENT DATE: 20180814
